FAERS Safety Report 8131243-1 (Version None)
Quarter: 2012Q1

REPORT INFORMATION
  Report Type: 
  Country: None (occurrence: None)
  Receive Date: 20120120
  Receipt Date: 20120120
  Transmission Date: 20120608
  Serious: Yes (Hospitalization)
  Sender: FDA-Public Use
  Company Number: None

PATIENT
  Age: 74 Year
  Sex: Female
  Weight: 67.6 kg

DRUGS (2)
  1. AMD3100 [Suspect]
     Dosage: 13,704 MCG SC INJECTION
     Route: 058
     Dates: start: 20120125
  2. FILGRASTIM (G-CSF) [Suspect]
     Dosage: 570 MCG SC INJECTION QDAY
     Route: 058
     Dates: start: 20120125, end: 20120201

REACTIONS (4)
  - DEHYDRATION [None]
  - SPLENIC RUPTURE [None]
  - HAEMATOMA [None]
  - HYPOTENSION [None]
